FAERS Safety Report 6280479-3 (Version None)
Quarter: 2009Q3

REPORT INFORMATION
  Report Type: 
  Country: None (occurrence: None)
  Receive Date: 20090724
  Receipt Date: 20080714
  Transmission Date: 20100115
  Serious: No
  Sender: FDA-Public Use
  Company Number: A0737727A

PATIENT
  Age: 36 Year
  Sex: Female

DRUGS (3)
  1. AVANDIA [Suspect]
     Dosage: 8MG PER DAY
     Route: 048
     Dates: start: 20010101
  2. NEXIUM [Concomitant]
  3. ZOLOFT [Concomitant]

REACTIONS (5)
  - BLOOD GLUCOSE DECREASED [None]
  - DIZZINESS [None]
  - HEADACHE [None]
  - NAUSEA [None]
  - VOMITING [None]
